FAERS Safety Report 7512497-9 (Version None)
Quarter: 2011Q2

REPORT INFORMATION
  Report Type: 
  Country: None (occurrence: None)
  Receive Date: 20110531
  Receipt Date: 20110517
  Transmission Date: 20111010
  Serious: Yes (Hospitalization)
  Sender: FDA-Public Use
  Company Number: US-ROCHE-774774

PATIENT
  Sex: Male
  Weight: 89 kg

DRUGS (8)
  1. PERTUZUMAB [Suspect]
     Indication: NEUROENDOCRINE CARCINOMA
     Dosage: LOADING DOSE AS PER PROTOCOL
     Route: 042
     Dates: start: 20110301, end: 20110301
  2. ZOFRAN [Concomitant]
     Indication: NAUSEA
     Dosage: FREQUENCY: AS NEEDED
  3. PHENERGAN HCL [Concomitant]
     Indication: NAUSEA
     Dosage: FREQUENCY: AS NEEDED
  4. PERTUZUMAB [Suspect]
     Dosage: MAINTENANCE DOSE, LAST DOSE PRIOR TO SAE ON 12 APRIL 2011
     Route: 042
  5. BEVACIZUMAB [Suspect]
     Indication: NEUROENDOCRINE CARCINOMA
     Dosage: LAST DOSE PRIOR TO SAE ON 12 APRIL 2011, CYCLE 3
     Route: 042
     Dates: start: 20110301
  6. OCTREOTIDE ACETATE [Suspect]
     Indication: NEUROENDOCRINE CARCINOMA
     Dosage: ROUTE: PUMP CONT
     Route: 050
  7. LEXAPRO [Concomitant]
     Indication: DEPRESSION
     Dosage: FREQUENCY: EVERY DAY
  8. XANAX [Concomitant]
     Indication: ANXIETY
     Dosage: FREQUENCY: AS NEEDED

REACTIONS (4)
  - NAUSEA [None]
  - VOMITING [None]
  - CARCINOID SYNDROME [None]
  - DIARRHOEA [None]
